FAERS Safety Report 20651218 (Version 1)
Quarter: 2022Q1

REPORT INFORMATION
  Report Type: Spontaneous
  Country: CN (occurrence: CN)
  Receive Date: 20220329
  Receipt Date: 20220329
  Transmission Date: 20220424
  Serious: Yes (Other)
  Sender: FDA-Public Use
  Company Number: CN-BAXTER-2022BAX006623

PATIENT
  Age: 72 Year
  Sex: Female
  Weight: 63 kg

DRUGS (4)
  1. CYCLOPHOSPHAMIDE [Suspect]
     Active Substance: CYCLOPHOSPHAMIDE
     Indication: Breast cancer female
     Dosage: 1 AND 2 CHEMOTHERAPY
     Route: 041
  2. CYCLOPHOSPHAMIDE [Suspect]
     Active Substance: CYCLOPHOSPHAMIDE
     Route: 041
     Dates: start: 20220302
  3. PACLITAXEL [Suspect]
     Active Substance: PACLITAXEL
     Indication: Breast cancer female
     Dosage: 1 AND 2 CHEMOTHERAPY (ALBUMIN-BINDING TYPE)
     Route: 041
  4. PACLITAXEL [Suspect]
     Active Substance: PACLITAXEL
     Route: 041
     Dates: start: 20220302

REACTIONS (5)
  - Syncope [Unknown]
  - Peripheral nerve injury [Recovering/Resolving]
  - Liver injury [Recovering/Resolving]
  - Neuropathy peripheral [Unknown]
  - Dizziness [Unknown]

NARRATIVE: CASE EVENT DATE: 20220302
